FAERS Safety Report 9985674 (Version 1)
Quarter: 2014Q1

REPORT INFORMATION
  Report Type: Report from Study
  Country: US (occurrence: US)
  Receive Date: 20140307
  Receipt Date: 20140307
  Transmission Date: 20141002
  Serious: No
  Sender: FDA-Public Use
  Company Number: US-ABBVIE-13P-163-1085862-00

PATIENT
  Age: 31 Year
  Sex: Male
  Weight: 67.19 kg

DRUGS (2)
  1. HUMIRA [Suspect]
     Indication: PSORIASIS
     Dates: start: 20130415, end: 20130415
  2. HUMIRA [Suspect]
     Dates: start: 20130422

REACTIONS (1)
  - Injection site bruising [Recovered/Resolved]
